FAERS Safety Report 4662682-9 (Version None)
Quarter: 2005Q2

REPORT INFORMATION
  Report Type: 
  Country: None (occurrence: None)
  Receive Date: 20050516
  Receipt Date: 20050426
  Transmission Date: 20051028
  Serious: Yes (Other)
  Sender: FDA-Public Use
  Company Number: US-GLAXOSMITHKLINE-A0555816A

PATIENT
  Age: 26 Year
  Sex: Female

DRUGS (2)
  1. AUGMENTIN XR [Suspect]
     Indication: UPPER RESPIRATORY TRACT INFECTION
     Dosage: 2000MG TWICE PER DAY
     Route: 048
     Dates: start: 20050408, end: 20050415
  2. LAMICTAL [Suspect]
     Indication: EPILEPSY
     Dosage: 200MG TWICE PER DAY
     Route: 048
     Dates: start: 20050225, end: 20050425

REACTIONS (3)
  - DRUG INTERACTION [None]
  - RASH [None]
  - UPPER RESPIRATORY TRACT INFECTION [None]
